FAERS Safety Report 20430447 (Version 1)
Quarter: 2022Q1

REPORT INFORMATION
  Report Type: Report from Study
  Country: FR (occurrence: FR)
  Receive Date: 20220204
  Receipt Date: 20220204
  Transmission Date: 20220423
  Serious: Yes (Other)
  Sender: FDA-Public Use
  Company Number: FR-SERVIER-S20009031

PATIENT

DRUGS (8)
  1. PEGASPARGASE [Suspect]
     Active Substance: PEGASPARGASE
     Indication: Acute lymphocytic leukaemia
     Dosage: 1250 IU, QD (D4)
     Route: 042
     Dates: start: 20180629, end: 20180629
  2. TN UNSEPCIFIED [Concomitant]
     Indication: Acute lymphocytic leukaemia
     Dosage: 1.5 MG (D1, D8, D15)
     Route: 042
     Dates: start: 20180626, end: 20180719
  3. TN UNSEPCIFIED [Concomitant]
     Indication: Acute lymphocytic leukaemia
     Dosage: 25 MG(D1, D8, D15),
     Route: 042
     Dates: start: 20180626, end: 20180719
  4. TN UNSEPCIFIED [Concomitant]
     Indication: Acute lymphocytic leukaemia
     Dosage: 12 MG (D4, D31)
     Route: 037
     Dates: start: 20180629, end: 20180806
  5. TN UNSEPCIFIED [Concomitant]
     Indication: Acute lymphocytic leukaemia
     Dosage: 10 MG (D1 TO D15),
     Route: 048
     Dates: start: 20180626, end: 20180719
  6. TN UNSEPCIFIED [Concomitant]
     Indication: Acute lymphocytic leukaemia
     Dosage: 1000 MG (D29)
     Route: 042
     Dates: start: 20180803, end: 20180803
  7. TN UNSEPCIFIED [Concomitant]
     Indication: Acute lymphocytic leukaemia
     Dosage: 60 MG (D29 TO D42),
     Route: 048
     Dates: start: 20180803, end: 20180817
  8. TN UNSEPCIFIED [Concomitant]
     Indication: Acute lymphocytic leukaemia
     Dosage: 75 MG (D31 TO D34, D38 TO D41)
     Route: 042
     Dates: start: 20180806, end: 20180816

REACTIONS (2)
  - Gamma-glutamyltransferase increased [Recovered/Resolved]
  - Hyperbilirubinaemia [Recovered/Resolved]

NARRATIVE: CASE EVENT DATE: 20180702
